FAERS Safety Report 9423542 (Version 2)
Quarter: 2013Q3

REPORT INFORMATION
  Report Type: Report from Study
  Country: US (occurrence: US)
  Receive Date: 20130726
  Receipt Date: 20130730
  Transmission Date: 20140515
  Serious: Yes (Hospitalization)
  Sender: FDA-Public Use
  Company Number: US-GLAXOSMITHKLINE-A0992036H

PATIENT
  Age: 65 Year
  Sex: Male
  Weight: 77.4 kg

DRUGS (2)
  1. GSK1120212 [Suspect]
     Indication: NEOPLASM
     Dosage: 2MG PER DAY
     Route: 048
     Dates: start: 20120822
  2. DOCETAXEL [Suspect]
     Indication: NEOPLASM
     Dosage: 75MGM2 EVERY 3 WEEKS
     Route: 042
     Dates: start: 20120822

REACTIONS (1)
  - Device related infection [Recovered/Resolved]
